FAERS Safety Report 17117948 (Version 3)
Quarter: 2021Q3

REPORT INFORMATION
  Report Type: Spontaneous
  Country: GR (occurrence: GR)
  Receive Date: 20191205
  Receipt Date: 20210810
  Transmission Date: 20211014
  Serious: Yes (Hospitalization, Other)
  Sender: FDA-Public Use
  Company Number: GR-PFIZER INC-2019520239

PATIENT
  Age: 29 Year
  Sex: Female

DRUGS (3)
  1. BETAMETHASONE [BETAMETHASONE SODIUM PHOSPHATE] [Suspect]
     Active Substance: BETAMETHASONE SODIUM PHOSPHATE
     Dosage: 12 MG
  2. LEVETIRACETAM. [Suspect]
     Active Substance: LEVETIRACETAM
     Indication: EPILEPSY
  3. LAMOTRIGINE. [Suspect]
     Active Substance: LAMOTRIGINE
     Indication: EPILEPSY
     Dosage: UNK

REACTIONS (3)
  - Maternal exposure during pregnancy [Unknown]
  - Premature rupture of membranes [Unknown]
  - Premature delivery [Unknown]
